FAERS Safety Report 9788945 (Version 1)
Quarter: 2013Q4

REPORT INFORMATION
  Report Type: Report from Study
  Country: US (occurrence: US)
  Receive Date: 20131230
  Receipt Date: 20131230
  Transmission Date: 20140711
  Serious: Yes (Life-Threatening, Hospitalization)
  Sender: FDA-Public Use
  Company Number: US-PFIZER INC-2013369441

PATIENT
  Age: 62 Year
  Sex: Male
  Weight: 93.1 kg

DRUGS (9)
  1. SUNITINIB MALATE [Suspect]
     Indication: METASTATIC RENAL CELL CARCINOMA
     Dosage: 37.5 MG, DAILY
     Route: 048
     Dates: start: 20130321, end: 20131216
  2. GEMCITABINE HYDROCHLORIDE [Suspect]
     Dosage: 750 MG, WEEKLY W/REST
     Route: 042
     Dates: start: 20130321, end: 20131210
  3. ACETAMINOPHEN [Concomitant]
  4. AMLODIPINE [Concomitant]
  5. BENADRYL [Concomitant]
  6. COMPAZINE [Concomitant]
  7. LISINOPRIL [Concomitant]
  8. OMEPRAZOLE [Concomitant]
  9. WARFARIN [Concomitant]

REACTIONS (1)
  - Acute myocardial infarction [Unknown]
